FAERS Safety Report 9028716 (Version 1)
Quarter: 2013Q1

REPORT INFORMATION
  Report Type: Report from Study
  Country: AT (occurrence: AT)
  Receive Date: 20130124
  Receipt Date: 20130124
  Transmission Date: 20140127
  Serious: Yes (Other)
  Sender: FDA-Public Use
  Company Number: AT-ABBOTT-13P-009-1036481-00

PATIENT
  Age: 83 Year
  Sex: Female
  Weight: 79 kg

DRUGS (29)
  1. ZEMPLAR [Suspect]
     Indication: HYPERPARATHYROIDISM SECONDARY
     Route: 042
     Dates: start: 20110930, end: 20111210
  2. DREISAVIT [Concomitant]
     Indication: PRODUCT USED FOR UNKNOWN INDICATION
     Dosage: 3 TAB/WEEK
     Route: 048
     Dates: start: 20100908
  3. ETALPHA [Concomitant]
     Indication: PRODUCT USED FOR UNKNOWN INDICATION
     Dosage: 0.75 MCG/WEEK
     Route: 048
     Dates: start: 20110418, end: 20111005
  4. FERLIXIT [Concomitant]
     Indication: PRODUCT USED FOR UNKNOWN INDICATION
     Dosage: 5ML/WEEK
     Route: 042
     Dates: start: 20110926
  5. FERLIXIT [Concomitant]
     Dosage: 31.25 MG/ WEEK
     Route: 048
     Dates: start: 20120116
  6. OLEOVIT D3 [Concomitant]
     Indication: PRODUCT USED FOR UNKNOWN INDICATION
     Dosage: DROPS; 14400 IE/WEEK
     Route: 048
     Dates: start: 20100617
  7. DOXAZOSIN [Concomitant]
     Indication: PRODUCT USED FOR UNKNOWN INDICATION
     Dosage: 28 MG/WEEK
     Route: 048
     Dates: start: 20101025
  8. MIMPARA [Concomitant]
     Indication: PRODUCT USED FOR UNKNOWN INDICATION
     Dosage: 210 MG/WEEK
     Route: 048
     Dates: start: 20110318, end: 20111229
  9. MIMPARA [Concomitant]
     Dosage: 30 MG/DAY
     Route: 048
     Dates: start: 20120404
  10. NOMEXOR [Concomitant]
     Indication: PRODUCT USED FOR UNKNOWN INDICATION
     Dosage: 35 MG/WEEK
     Route: 048
     Dates: start: 20101020, end: 20111107
  11. RENVELA [Concomitant]
     Indication: PRODUCT USED FOR UNKNOWN INDICATION
     Dosage: 28G/WEEK
     Route: 048
     Dates: start: 20110318, end: 20120524
  12. RENVELA [Concomitant]
     Route: 048
     Dates: start: 20120525
  13. RESONIUM A [Concomitant]
     Indication: PRODUCT USED FOR UNKNOWN INDICATION
     Dosage: POWDER; 7MB/WEEK
     Route: 048
     Dates: start: 20110518
  14. THIAMAZOL [Concomitant]
     Indication: PRODUCT USED FOR UNKNOWN INDICATION
     Dosage: 70 MG/WEEK
     Route: 048
     Dates: start: 20100617
  15. TORASEMID [Concomitant]
     Indication: PRODUCT USED FOR UNKNOWN INDICATION
     Dosage: 140 MG/WEEK
     Route: 048
     Dates: start: 20110518
  16. ROCALTROL [Concomitant]
     Indication: PRODUCT USED FOR UNKNOWN INDICATION
     Dosage: 3X/WEEK
     Route: 048
     Dates: start: 20120620
  17. NEORECORMON [Concomitant]
     Indication: PRODUCT USED FOR UNKNOWN INDICATION
     Dosage: 15000 IE/WEEK
     Route: 042
     Dates: start: 20110530, end: 20111005
  18. NEORECORMON [Concomitant]
     Dosage: 5000 IE/WEEK
     Dates: start: 20111005, end: 20111012
  19. NEORECORMON [Concomitant]
     Dosage: 5000 IE/WEEK
     Dates: start: 20111114, end: 20111208
  20. NEORECORMON [Concomitant]
     Dosage: 10000 IE/WEEK
     Route: 042
     Dates: start: 20111209, end: 20111211
  21. NEORECORMON [Concomitant]
     Dosage: 15000 IE/WEEK
     Route: 042
     Dates: start: 20111212, end: 20111229
  22. NEORECORMON [Concomitant]
     Dosage: 21000 IE/WEEK
     Route: 042
     Dates: start: 20111230, end: 20120119
  23. NEORECORMON [Concomitant]
     Dosage: 30000 IE/WEEK
     Route: 042
     Dates: start: 20120120, end: 20120216
  24. NEORECORMON [Concomitant]
     Dosage: 20000 IE/WEEK
     Route: 042
     Dates: start: 20120217, end: 20120304
  25. NEORECORMON [Concomitant]
     Dosage: 30000 IE/WEEK
     Route: 042
     Dates: start: 20120305, end: 20120308
  26. NEORECORMON [Concomitant]
     Dosage: 24000 IE/WEEK
     Route: 042
     Dates: start: 20120309, end: 20120410
  27. NEORECORMON [Concomitant]
     Dosage: 18000 IE/WEEK
     Route: 042
     Dates: start: 20120411, end: 20120412
  28. NEORECORMON [Concomitant]
     Dosage: 12000 IE/WEEK
     Route: 042
     Dates: start: 20120413, end: 20120705
  29. NEORECORMON [Concomitant]
     Dosage: 8000 IE/ 2X/WEEK
     Route: 042
     Dates: start: 20120706

REACTIONS (4)
  - Shunt stenosis [Recovered/Resolved]
  - Anaemia macrocytic [Recovered/Resolved]
  - Swelling [Recovered/Resolved]
  - Hyperchromic anaemia [Recovered/Resolved]
